FAERS Safety Report 12494947 (Version 2)
Quarter: 2016Q2

REPORT INFORMATION
  Report Type: Spontaneous
  Country: US (occurrence: US)
  Receive Date: 20160624
  Receipt Date: 20160628
  Transmission Date: 20160815
  Serious: Yes (Hospitalization, Other)
  Sender: FDA-Public Use
  Company Number: US-HORIZON-DUE-0116-2016

PATIENT
  Age: 79 Year
  Sex: Female

DRUGS (10)
  1. DUEXIS [Suspect]
     Active Substance: FAMOTIDINE\IBUPROFEN
     Indication: BACK PAIN
     Dates: start: 20160119, end: 201602
  2. GALVASCON [Concomitant]
  3. ALBUTEROL. [Concomitant]
     Active Substance: ALBUTEROL
     Dosage: PRN
  4. PRILOSEC [Concomitant]
     Active Substance: OMEPRAZOLE MAGNESIUM
  5. SYMBICORT [Concomitant]
     Active Substance: BUDESONIDE\FORMOTEROL FUMARATE DIHYDRATE
  6. OXYCODONE/ACETAMINOPHEN [Concomitant]
     Active Substance: ACETAMINOPHEN\OXYCODONE HYDROCHLORIDE
  7. NOVOLOG [Concomitant]
     Active Substance: INSULIN ASPART
  8. LIDOCAINE. [Concomitant]
     Active Substance: LIDOCAINE
  9. LISINOPRIL. [Concomitant]
     Active Substance: LISINOPRIL
  10. PROAIR HFA [Concomitant]
     Active Substance: ALBUTEROL SULFATE
     Dosage: PRN

REACTIONS (4)
  - Gastrointestinal pain [Unknown]
  - Hypoxia [Unknown]
  - Off label use [Unknown]
  - Drug ineffective [Unknown]

NARRATIVE: CASE EVENT DATE: 201602
